FAERS Safety Report 18398811 (Version 1)
Quarter: 2020Q4

REPORT INFORMATION
  Report Type: Spontaneous
  Country: JP (occurrence: JP)
  Receive Date: 20201019
  Receipt Date: 20201019
  Transmission Date: 20210114
  Serious: Yes (Death, Other)
  Sender: FDA-Public Use
  Company Number: JP-009507513-2010JPN001182J

PATIENT
  Age: 8 Decade
  Sex: Female

DRUGS (1)
  1. ZERBAXA [Suspect]
     Active Substance: CEFTOLOZANE SULFATE\TAZOBACTAM SODIUM
     Indication: PNEUMONIA
     Dosage: 3 GRAM, TID
     Route: 041
     Dates: start: 20200905, end: 20200908

REACTIONS (1)
  - Atypical mycobacterial infection [Fatal]

NARRATIVE: CASE EVENT DATE: 202009
